FAERS Safety Report 25316926 (Version 1)
Quarter: 2025Q2

REPORT INFORMATION
  Report Type: Report from Study
  Country: US (occurrence: US)
  Receive Date: 20250515
  Receipt Date: 20250515
  Transmission Date: 20250716
  Serious: Yes (Hospitalization, Other)
  Sender: ABBVIE
  Company Number: US-ABBVIE-6190300

PATIENT
  Age: 73 Year
  Sex: Male
  Weight: 100 kg

DRUGS (1)
  1. SKYRIZI [Suspect]
     Active Substance: RISANKIZUMAB-RZAA
     Indication: Psoriasis
     Dosage: DOSE FORM- SOLUTION FOR INJECTION IN PRE-FILLED INJECTOR
     Route: 058
     Dates: start: 20250108

REACTIONS (6)
  - Pneumonia [Recovered/Resolved]
  - Pulmonary oedema [Unknown]
  - Vomiting [Unknown]
  - Nasal congestion [Unknown]
  - Loss of consciousness [Recovered/Resolved]
  - Movement disorder [Unknown]

NARRATIVE: CASE EVENT DATE: 20250329
